FAERS Safety Report 5885368-1 (Version None)
Quarter: 2008Q3

REPORT INFORMATION
  Report Type: 
  Country: None (occurrence: None)
  Receive Date: 20080916
  Receipt Date: 20080905
  Transmission Date: 20090109
  Serious: Yes (Hospitalization)
  Sender: FDA-Public Use
  Company Number: FR-PFIZER INC-2008075383

PATIENT
  Sex: Female
  Weight: 58 kg

DRUGS (1)
  1. SU-011,248 [Suspect]
     Indication: BREAST CANCER METASTATIC
     Dosage: DAILY DOSE:37.5MG-TEXT:TDD:37.5 MG
     Route: 048
     Dates: start: 20080725, end: 20080823

REACTIONS (2)
  - NERVOUS SYSTEM DISORDER [None]
  - PLEURAL EFFUSION [None]
